FAERS Safety Report 19374794 (Version 1)
Quarter: 2021Q2

REPORT INFORMATION
  Report Type: Report from Study
  Country: US (occurrence: US)
  Receive Date: 20210604
  Receipt Date: 20210604
  Transmission Date: 20210717
  Serious: Yes (Other)
  Sender: FDA-Public Use
  Company Number: US-JNJFOC-20210550149

PATIENT
  Age: 22 Year
  Sex: Female

DRUGS (5)
  1. SPRAVATO [Suspect]
     Active Substance: ESKETAMINE
     Indication: DEPRESSION
     Dosage: 56 MG; TOTAL 5 DOSES
     Dates: start: 20200127, end: 20200210
  2. SPRAVATO [Suspect]
     Active Substance: ESKETAMINE
     Dosage: 56 MG; TOTAL 10 DOSES
     Dates: start: 20210301, end: 20210331
  3. SPRAVATO [Suspect]
     Active Substance: ESKETAMINE
     Dosage: 84 MG; TOTAL 61 DOSES
     Dates: start: 20200213, end: 20210222
  4. SPRAVATO [Suspect]
     Active Substance: ESKETAMINE
     Dosage: 84 MG; TOTAL 3 DOSES
     Dates: start: 20210407, end: 20210421
  5. SPRAVATO [Suspect]
     Active Substance: ESKETAMINE
     Dosage: 56 MG; TOTAL 5 DOSES
     Dates: start: 20210426, end: 20210514

REACTIONS (2)
  - Sedation [Recovered/Resolved]
  - Unresponsive to stimuli [Recovered/Resolved]

NARRATIVE: CASE EVENT DATE: 20210514
